FAERS Safety Report 8217629-5 (Version None)
Quarter: 2012Q1

REPORT INFORMATION
  Report Type: 
  Country: None (occurrence: None)
  Receive Date: 20120319
  Receipt Date: 20120319
  Transmission Date: 20120608
  Serious: Yes (Other)
  Sender: FDA-Public Use
  Company Number: None

PATIENT
  Age: 54 Year
  Sex: Female
  Weight: 83.914 kg

DRUGS (1)
  1. CYMBALTA [Suspect]
     Indication: FIBROMYALGIA

REACTIONS (15)
  - VERTIGO [None]
  - CRYING [None]
  - WOUND [None]
  - MENTAL DISORDER [None]
  - MUSCULOSKELETAL STIFFNESS [None]
  - NAUSEA [None]
  - ANGER [None]
  - PRURITUS [None]
  - WEIGHT INCREASED [None]
  - FEELING ABNORMAL [None]
  - HAEMORRHAGIC DIATHESIS [None]
  - BLISTER [None]
  - DIZZINESS [None]
  - DEPRESSION [None]
  - PAIN OF SKIN [None]
